FAERS Safety Report 23369912 (Version 1)
Quarter: 2024Q1

REPORT INFORMATION
  Report Type: Spontaneous
  Country: US (occurrence: None)
  Receive Date: 20240104
  Receipt Date: 20240104
  Transmission Date: 20240410
  Serious: No
  Sender: FDA-Public Use
  Company Number: None

PATIENT
  Sex: Male

DRUGS (1)
  1. NEULASTA [Suspect]
     Active Substance: PEGFILGRASTIM
     Indication: Anaplastic large-cell lymphoma
     Dosage: OTHER FREQUENCY : EVERY21DAY;?
     Route: 058
     Dates: start: 202312

REACTIONS (1)
  - Hospitalisation [None]
